FAERS Safety Report 10997351 (Version 1)
Quarter: 2015Q2

REPORT INFORMATION
  Report Type: Spontaneous
  Country: US (occurrence: US)
  Receive Date: 20150408
  Receipt Date: 20150408
  Transmission Date: 20150821
  Serious: No
  Sender: FDA-Public Use
  Company Number: US-BANPHARM-20142630

PATIENT
  Age: 34 Year
  Sex: Female
  Weight: 88.45 kg

DRUGS (1)
  1. ALEVE [Suspect]
     Active Substance: NAPROXEN SODIUM
     Indication: HEADACHE
     Route: 048

REACTIONS (2)
  - Nausea [Not Recovered/Not Resolved]
  - Incorrect drug administration rate [Unknown]
